FAERS Safety Report 20646748 (Version 1)
Quarter: 2022Q1

REPORT INFORMATION
  Report Type: Spontaneous
  Country: NL (occurrence: NL)
  Receive Date: 20220329
  Receipt Date: 20220329
  Transmission Date: 20220423
  Serious: Yes (Other)
  Sender: FDA-Public Use
  Company Number: NL-ALKEM LABORATORIES LIMITED-NL-ALKEM-2022-02339

PATIENT
  Age: 13 Year
  Sex: Male

DRUGS (1)
  1. PREGABALIN [Suspect]
     Active Substance: PREGABALIN
     Indication: Product used for unknown indication
     Dosage: 150 MILLIGRAM
     Route: 065

REACTIONS (9)
  - Angina pectoris [Unknown]
  - Overdose [Unknown]
  - Product use issue [Unknown]
  - Somnolence [Unknown]
  - Dizziness [Unknown]
  - Tachycardia [Unknown]
  - Muscle twitching [Unknown]
  - Nausea [Unknown]
  - Abdominal pain upper [Unknown]
